FAERS Safety Report 15836281 (Version 1)
Quarter: 2019Q1

REPORT INFORMATION
  Report Type: Spontaneous
  Country: CN (occurrence: CN)
  Receive Date: 20190117
  Receipt Date: 20190117
  Transmission Date: 20190417
  Serious: Yes (Death, Other)
  Sender: FDA-Public Use
  Company Number: CN-ROCHE-2244527

PATIENT
  Age: 50 Year
  Sex: Male

DRUGS (23)
  1. BEVACIZUMAB. [Suspect]
     Active Substance: BEVACIZUMAB
     Indication: RECTAL ADENOCARCINOMA
     Route: 065
     Dates: start: 20131213, end: 20160706
  2. BEVACIZUMAB. [Suspect]
     Active Substance: BEVACIZUMAB
     Indication: METASTASES TO LUNG
  3. CALCIUM FOLINATE [Concomitant]
     Active Substance: LEUCOVORIN CALCIUM
     Route: 065
     Dates: start: 20151216, end: 20160122
  4. FLUOROURACIL. [Concomitant]
     Active Substance: FLUOROURACIL
     Route: 065
     Dates: start: 20151216, end: 20160122
  5. OXALIPLATIN. [Concomitant]
     Active Substance: OXALIPLATIN
     Indication: METASTASES TO LUNG
     Route: 065
     Dates: start: 20160622, end: 20160706
  6. CALCIUM FOLINATE [Concomitant]
     Active Substance: LEUCOVORIN CALCIUM
     Route: 065
     Dates: start: 20160805, end: 20160914
  7. OXALIPLATIN. [Concomitant]
     Active Substance: OXALIPLATIN
     Route: 065
     Dates: start: 20120519
  8. CALCIUM FOLINATE [Concomitant]
     Active Substance: LEUCOVORIN CALCIUM
     Indication: RECTAL ADENOCARCINOMA
     Route: 065
     Dates: start: 20131213, end: 20140806
  9. FLUOROURACIL. [Concomitant]
     Active Substance: FLUOROURACIL
     Route: 065
     Dates: start: 20160525, end: 20160706
  10. CAPECITABINE. [Suspect]
     Active Substance: CAPECITABINE
     Route: 048
     Dates: start: 20131213, end: 20160706
  11. CALCIUM FOLINATE [Concomitant]
     Active Substance: LEUCOVORIN CALCIUM
     Indication: METASTASES TO LUNG
     Route: 065
     Dates: start: 20150716, end: 20150822
  12. CALCIUM FOLINATE [Concomitant]
     Active Substance: LEUCOVORIN CALCIUM
     Route: 065
     Dates: start: 201603
  13. FLUOROURACIL. [Concomitant]
     Active Substance: FLUOROURACIL
     Route: 065
     Dates: start: 20160805, end: 20160914
  14. IRINOTECAN [Concomitant]
     Active Substance: IRINOTECAN
     Indication: METASTASES TO LUNG
     Route: 065
     Dates: start: 20150716, end: 20150822
  15. IRINOTECAN [Concomitant]
     Active Substance: IRINOTECAN
     Route: 065
     Dates: start: 20160805, end: 20160914
  16. FLUOROURACIL. [Concomitant]
     Active Substance: FLUOROURACIL
     Indication: METASTASES TO LUNG
     Route: 065
     Dates: start: 20150716, end: 20150822
  17. FLUOROURACIL. [Concomitant]
     Active Substance: FLUOROURACIL
     Route: 065
     Dates: start: 20140828, end: 20150630
  18. CAPECITABINE. [Suspect]
     Active Substance: CAPECITABINE
     Indication: RECTAL ADENOCARCINOMA
     Dosage: ON AN UNKNOWN DATE IN JUL/2012 PATIENT RECEIVED THE CAPECITABINE.
     Route: 048
     Dates: start: 20120519
  19. IRINOTECAN [Concomitant]
     Active Substance: IRINOTECAN
     Indication: RECTAL ADENOCARCINOMA
     Route: 065
     Dates: start: 20131213, end: 20140806
  20. FLUOROURACIL. [Concomitant]
     Active Substance: FLUOROURACIL
     Indication: RECTAL ADENOCARCINOMA
     Route: 065
     Dates: start: 20131213, end: 20140806
  21. FLUOROURACIL. [Concomitant]
     Active Substance: FLUOROURACIL
     Route: 065
     Dates: start: 201603
  22. OXALIPLATIN. [Concomitant]
     Active Substance: OXALIPLATIN
     Indication: RECTAL ADENOCARCINOMA
     Dosage: ON AN UNKNOWN DATE IN MAR/2016 PATIENT RECEIVED THE OXIPLATIN.
     Route: 065
     Dates: start: 20151216, end: 20160122
  23. CETUXIMAB. [Concomitant]
     Active Substance: CETUXIMAB
     Route: 065
     Dates: start: 20160805, end: 20160914

REACTIONS (5)
  - Diarrhoea [Unknown]
  - Haemoptysis [Unknown]
  - Bone marrow failure [Unknown]
  - Death [Fatal]
  - Metastases to lung [Unknown]

NARRATIVE: CASE EVENT DATE: 201603
